FAERS Safety Report 7594452-6 (Version None)
Quarter: 2011Q3

REPORT INFORMATION
  Report Type: 
  Country: None (occurrence: None)
  Receive Date: 20110707
  Receipt Date: 20110630
  Transmission Date: 20111222
  Serious: Yes (Hospitalization)
  Sender: FDA-Public Use
  Company Number: RO-AMGEN-ROUSP2011032505

PATIENT
  Age: 15 Year
  Sex: Female
  Weight: 63 kg

DRUGS (2)
  1. SULFASALAZINE [Concomitant]
     Dosage: 2 G, UNK
     Dates: start: 20090101
  2. ENBREL [Suspect]
     Indication: JUVENILE ARTHRITIS
     Dosage: 25 MG, UNK
     Route: 058
     Dates: start: 20110608, end: 20110615

REACTIONS (6)
  - HYPERAEMIA [None]
  - EYELID OEDEMA [None]
  - EYELIDS PRURITUS [None]
  - CONJUNCTIVAL OEDEMA [None]
  - PRURITUS [None]
  - PERIORBITAL OEDEMA [None]
